FAERS Safety Report 18943659 (Version 2)
Quarter: 2022Q1

REPORT INFORMATION
  Report Type: Spontaneous
  Country: US (occurrence: US)
  Receive Date: 20210226
  Receipt Date: 20220209
  Transmission Date: 20220423
  Serious: No
  Sender: FDA-Public Use
  Company Number: US-ALLERGAN-2102658US

PATIENT
  Sex: Male

DRUGS (2)
  1. SAVELLA [Suspect]
     Active Substance: MILNACIPRAN HYDROCHLORIDE
     Indication: Somnolence
     Dosage: UNSURE, 12.5 MG DAILY
     Route: 048
     Dates: start: 20210112, end: 202101
  2. SAVELLA [Suspect]
     Active Substance: MILNACIPRAN HYDROCHLORIDE
     Indication: Fatigue
     Dosage: UNSURE, 12.5 MG DAILY
     Route: 048
     Dates: start: 2020, end: 2020

REACTIONS (5)
  - Micturition urgency [Recovering/Resolving]
  - Off label use [Unknown]
  - Expired product administered [Unknown]
  - Urine flow decreased [Recovering/Resolving]
  - Dysuria [Recovering/Resolving]

NARRATIVE: CASE EVENT DATE: 20210101
